FAERS Safety Report 12247434 (Version 3)
Quarter: 2016Q2

REPORT INFORMATION
  Report Type: Spontaneous
  Country: FR (occurrence: FR)
  Receive Date: 20160407
  Receipt Date: 20160420
  Transmission Date: 20160815
  Serious: Yes (Other)
  Sender: FDA-Public Use
  Company Number: FR-ALLERGAN-1653074US

PATIENT
  Age: 48 Year
  Sex: Female

DRUGS (2)
  1. ESMYA [Suspect]
     Active Substance: ULIPRISTAL ACETATE
     Indication: MENOMETRORRHAGIA
     Dosage: UNK
     Dates: start: 201507
  2. ESMYA [Suspect]
     Active Substance: ULIPRISTAL ACETATE
     Indication: UTERINE LEIOMYOMA
     Dosage: UNK
     Dates: start: 201502

REACTIONS (2)
  - Amenorrhoea [Recovered/Resolved]
  - Uterine leiomyosarcoma [Recovered/Resolved]
